FAERS Safety Report 13878784 (Version 2)
Quarter: 2017Q3

REPORT INFORMATION
  Report Type: Spontaneous
  Country: NL (occurrence: NL)
  Receive Date: 20170817
  Receipt Date: 20170920
  Transmission Date: 20171127
  Serious: Yes (Other)
  Sender: FDA-Public Use
  Company Number: NL-APOPHARMA USA, INC.-2017AP016582

PATIENT

DRUGS (1)
  1. ALKERAN [Suspect]
     Active Substance: MELPHALAN
     Indication: MALIGNANT MELANOMA
     Dosage: UNK, UNKNOWN
     Route: 065

REACTIONS (1)
  - Compartment syndrome [Unknown]
